FAERS Safety Report 15216007 (Version 2)
Quarter: 2018Q3

REPORT INFORMATION
  Report Type: Spontaneous
  Country: ES (occurrence: ES)
  Receive Date: 20180730
  Receipt Date: 20180828
  Transmission Date: 20181010
  Serious: Yes (Other)
  Sender: FDA-Public Use
  Company Number: ES-PFIZER INC-2018302714

PATIENT
  Age: 76 Year
  Sex: Male
  Weight: 65 kg

DRUGS (11)
  1. EFFERALGAN [Concomitant]
     Active Substance: ACETAMINOPHEN
     Dosage: UNK
  2. ZARATOR [Concomitant]
     Active Substance: ATORVASTATIN CALCIUM
     Dosage: UNK
  3. XALKORI [Suspect]
     Active Substance: CRIZOTINIB
     Indication: LUNG ADENOCARCINOMA
     Dosage: 500 MG, UNK
     Route: 048
     Dates: start: 20161027, end: 20161121
  4. DUODART [Concomitant]
     Active Substance: DUTASTERIDE\TAMSULOSIN
     Dosage: UNK
  5. DIOVAN [Concomitant]
     Active Substance: VALSARTAN
     Dosage: UNK
  6. PANTOPRAZOLE [Concomitant]
     Active Substance: PANTOPRAZOLE
     Dosage: UNK
  7. CARDURAN NEO [Concomitant]
     Active Substance: DOXAZOSIN MESYLATE
     Dosage: UNK
  8. DUPHALAC [Concomitant]
     Active Substance: LACTULOSE
     Dosage: UNK
  9. FORTECORTIN [Concomitant]
     Active Substance: DEXAMETHASONE
     Dosage: UNK
  10. LEVOFLOXACIN. [Concomitant]
     Active Substance: LEVOFLOXACIN
     Dosage: UNK
  11. NOCTAMID [Concomitant]
     Active Substance: LORMETAZEPAM
     Dosage: UNK

REACTIONS (3)
  - Hyperbilirubinaemia [Recovered/Resolved]
  - Hepatitis acute [Recovered/Resolved]
  - Hypertransaminasaemia [Recovered/Resolved]

NARRATIVE: CASE EVENT DATE: 20161121
